FAERS Safety Report 13661984 (Version 1)
Quarter: 2017Q2

REPORT INFORMATION
  Report Type: Spontaneous
  Country: CN (occurrence: CN)
  Receive Date: 20170616
  Receipt Date: 20170616
  Transmission Date: 20170830
  Serious: Yes (Other)
  Sender: FDA-Public Use
  Company Number: CN-PFIZER INC-2017263799

PATIENT
  Age: 50 Year
  Sex: Female

DRUGS (2)
  1. NORVASC [Suspect]
     Active Substance: AMLODIPINE BESYLATE
     Indication: HYPERTENSION
     Dosage: 5 MG, 1X/DAY
     Route: 048
  2. MICARDIS [Concomitant]
     Active Substance: TELMISARTAN

REACTIONS (3)
  - Diabetes mellitus [Unknown]
  - Coronary artery disease [Unknown]
  - Chronic kidney disease [Unknown]
